FAERS Safety Report 14849699 (Version 3)
Quarter: 2018Q3

REPORT INFORMATION
  Report Type: Report from Study
  Country: US (occurrence: US)
  Receive Date: 20180504
  Receipt Date: 20180918
  Transmission Date: 20181010
  Serious: Yes (Hospitalization, Other)
  Sender: FDA-Public Use
  Company Number: US-TAKEDA-2018TUS015730

PATIENT
  Sex: Male
  Weight: 86.32 kg

DRUGS (4)
  1. PONATINIB [Suspect]
     Active Substance: PONATINIB
     Indication: ACUTE LYMPHOCYTIC LEUKAEMIA
     Dosage: 30 MG, QD
     Route: 048
     Dates: start: 20170915
  2. URSODIOL. [Concomitant]
     Active Substance: URSODIOL
     Dosage: 500 MG, QD
     Route: 065
  3. DAPSONE. [Suspect]
     Active Substance: DAPSONE
     Indication: ANTIBIOTIC PROPHYLAXIS
     Dosage: 100 MG, QD
     Route: 048
     Dates: start: 20170719, end: 20180420
  4. LISINOPRIL. [Concomitant]
     Active Substance: LISINOPRIL
     Dosage: 500 MG, UNK
     Route: 065

REACTIONS (2)
  - Neoplasm progression [Unknown]
  - Blindness [Recovered/Resolved with Sequelae]
